FAERS Safety Report 7419719-3 (Version None)
Quarter: 2011Q2

REPORT INFORMATION
  Report Type: 
  Country: None (occurrence: None)
  Receive Date: 20110418
  Receipt Date: 20110406
  Transmission Date: 20111010
  Serious: Yes (Death, Hospitalization, Other)
  Sender: FDA-Public Use
  Company Number: ES-ELI_LILLY_AND_COMPANY-ES201011003601

PATIENT
  Sex: Female
  Weight: 75 kg

DRUGS (11)
  1. ARICEPT [Concomitant]
     Indication: DEMENTIA ALZHEIMER'S TYPE
     Dosage: 5 MG, EACH EVENING
     Route: 048
  2. DEPRAX [Concomitant]
     Dosage: 100 MG, EACH EVENING
     Route: 048
  3. CITALOPRAM HYDROBROMIDE [Concomitant]
     Indication: DEPRESSION
     Dosage: 20 MG, EACH MORNING
     Route: 048
  4. PANTOPRAZOLE SODIUM [Concomitant]
     Indication: PROPHYLAXIS
     Dosage: 20 MG, EACH MORNING
     Route: 048
  5. FORTEO [Suspect]
     Indication: OSTEOPOROSIS
     Dosage: 20 UG, DAILY (1/D)
     Route: 058
     Dates: start: 20101015, end: 20101107
  6. IBUPROFEN [Concomitant]
     Indication: PAIN
     Dosage: UNK, EVERY 8 HRS
     Route: 048
  7. LORAZEPAM [Concomitant]
     Dosage: UNK, EACH EVENING
     Route: 048
  8. FORTEO [Suspect]
     Dosage: 20 UG, UNK
     Route: 058
     Dates: end: 20110201
  9. ATORVASTATINA [Concomitant]
     Indication: BLOOD CHOLESTEROL
     Dosage: 20 MG, EACH EVENING
     Route: 048
  10. DIAMICRON [Concomitant]
     Indication: DIABETES MELLITUS
     Dosage: UNK, EACH MORNING
     Route: 048
  11. CALCIO [Concomitant]
     Indication: BLOOD CALCIUM
     Dosage: UNK, DAILY (1/D)
     Route: 048

REACTIONS (1)
  - CEREBRAL HAEMORRHAGE [None]
